FAERS Safety Report 6240676-X (Version None)
Quarter: 2009Q2

REPORT INFORMATION
  Report Type: 
  Country: None (occurrence: None)
  Receive Date: 20090623
  Receipt Date: 20090122
  Transmission Date: 20091009
  Serious: No
  Sender: FDA-Public Use
  Company Number: US-ASTRAZENECA-2009UW00481

PATIENT
  Age: 80 Year
  Sex: Female

DRUGS (2)
  1. PULMICORT FLEXHALER [Suspect]
     Indication: RESPIRATORY DISORDER
     Dosage: 180 MCG, UNKNOWN
     Route: 055
  2. RESCUE INHALER [Concomitant]

REACTIONS (1)
  - ILL-DEFINED DISORDER [None]
